FAERS Safety Report 8810137 (Version 1)
Quarter: 2012Q4

REPORT INFORMATION
  Report Type: 
  Country: US (occurrence: US)
  Receive Date: 20120926
  Receipt Date: 20120926
  Transmission Date: 20130627
  Serious: No
  Sender: FDA-Public Use
  Company Number: US-ASTRAZENECA-2012SE73709

PATIENT
  Sex: Male

DRUGS (2)
  1. SYMBICORT PMDI [Suspect]
     Indication: ASTHMA
     Dosage: 160/ 4.5 MCG, BID
     Route: 055
  2. NASONEX [Concomitant]

REACTIONS (2)
  - Asthma [Unknown]
  - Insomnia [Unknown]
